FAERS Safety Report 4287340-4 (Version None)
Quarter: 2004Q1

REPORT INFORMATION
  Report Type: 
  Country: None (occurrence: None)
  Receive Date: 20040209
  Receipt Date: 20020809
  Transmission Date: 20041129
  Serious: No
  Sender: FDA-Public Use
  Company Number: US-GLAXOSMITHKLINE-A0377919A

PATIENT
  Age: 74 Year
  Sex: Female

DRUGS (3)
  1. PAXIL [Suspect]
     Indication: ANXIETY
     Route: 048
     Dates: start: 20020613
  2. VIOXX [Concomitant]
  3. TYLENOL (CAPLET) [Concomitant]

REACTIONS (2)
  - HYPOTRICHOSIS [None]
  - LETHARGY [None]
